FAERS Safety Report 24568116 (Version 2)
Quarter: 2024Q4

REPORT INFORMATION
  Report Type: Report from Study
  Country: CA (occurrence: CA)
  Receive Date: 20241031
  Receipt Date: 20241108
  Transmission Date: 20250115
  Serious: Yes (Other)
  Sender: CELLTRION
  Company Number: CA-CELLTRION INC.-2023CA011057

PATIENT

DRUGS (15)
  1. YUFLYMA [Suspect]
     Active Substance: ADALIMUMAB-AATY
     Indication: Psoriasis
     Dosage: 40 MG, Q2WEEKS (WEEKS-2 WEEKS); PATIENT HAD 4 DOSES OF YUFLYMA ALREADY.
     Route: 058
     Dates: start: 20230412
  2. YUFLYMA [Suspect]
     Active Substance: ADALIMUMAB-AATY
     Dosage: 40 MG, Q2WEEKS (WEEKS-2 WEEKS); PATIENT HAD 4 DOSES OF YUFLYMA ALREADY.
     Route: 058
     Dates: start: 20230426
  3. YUFLYMA [Suspect]
     Active Substance: ADALIMUMAB-AATY
     Dosage: 40 MG, Q2WEEKS (WEEKS-2 WEEKS); PATIENT HAD 4 DOSES OF YUFLYMA ALREADY.
     Route: 058
     Dates: start: 20230510
  4. YUFLYMA [Suspect]
     Active Substance: ADALIMUMAB-AATY
     Dosage: 40 MG, Q2WEEKS (WEEKS-2 WEEKS); PATIENT HAD 4 DOSES OF YUFLYMA ALREADY.
     Route: 058
     Dates: start: 20230525
  5. YUFLYMA [Suspect]
     Active Substance: ADALIMUMAB-AATY
     Dosage: 40 MG, Q2WEEKS (WEEKS-2 WEEKS); PATIENT HAD 4 DOSES OF YUFLYMA ALREADY.
     Route: 058
     Dates: start: 20230614
  6. YUFLYMA [Suspect]
     Active Substance: ADALIMUMAB-AATY
     Dosage: 40 MG, Q2WEEKS (WEEKS-2 WEEKS); PATIENT HAD 4 DOSES OF YUFLYMA ALREADY.
     Route: 058
     Dates: start: 20230628
  7. YUFLYMA [Suspect]
     Active Substance: ADALIMUMAB-AATY
     Dosage: 40 MG, Q2WEEKS (WEEKS-2 WEEKS); PATIENT HAD 4 DOSES OF YUFLYMA ALREADY.
     Route: 058
     Dates: start: 20230713
  8. YUFLYMA [Suspect]
     Active Substance: ADALIMUMAB-AATY
     Dosage: 40 MG WEEKLY
     Route: 058
  9. YUFLYMA [Suspect]
     Active Substance: ADALIMUMAB-AATY
     Dosage: 40 MG SC Q 2 WEEKS
     Route: 058
     Dates: start: 20241023
  10. LORAZEPAM [Concomitant]
     Active Substance: LORAZEPAM
     Dosage: 1 MG, BID
  11. SYNTHROID [Concomitant]
     Active Substance: LEVOTHYROXINE SODIUM
     Dosage: 0.07 MG, DAILY
  12. METOPROLOL [Concomitant]
     Active Substance: METOPROLOL
     Dosage: 75 MG, DAILY
  13. CANDESARTAN [Concomitant]
     Active Substance: CANDESARTAN
     Dosage: 8 MG, BID
  14. ALLOPURINOL [Concomitant]
     Active Substance: ALLOPURINOL
     Dosage: 300 MG, DAILY
  15. AMLODIPINE [Concomitant]
     Active Substance: AMLODIPINE BESYLATE
     Dosage: 5 MG

REACTIONS (14)
  - Alcohol poisoning [Recovered/Resolved]
  - Neuropathy peripheral [Unknown]
  - Osteoarthritis [Not Recovered/Not Resolved]
  - Malaise [Not Recovered/Not Resolved]
  - Eczema [Not Recovered/Not Resolved]
  - Injection site bruising [Recovered/Resolved]
  - Infection [Not Recovered/Not Resolved]
  - Arthritis [Unknown]
  - Hypersensitivity [Unknown]
  - Device malfunction [Unknown]
  - Product dose omission in error [Recovered/Resolved]
  - Product storage error [Unknown]
  - Wrong technique in product usage process [Not Recovered/Not Resolved]
  - Inappropriate schedule of product administration [Not Recovered/Not Resolved]

NARRATIVE: CASE EVENT DATE: 20230412
